FAERS Safety Report 6556497-4 (Version None)
Quarter: 2010Q1

REPORT INFORMATION
  Report Type: 
  Country: None (occurrence: None)
  Receive Date: 20100128
  Receipt Date: 20100122
  Transmission Date: 20100710
  Serious: Yes (Death, Hospitalization)
  Sender: FDA-Public Use
  Company Number: IN-ELI_LILLY_AND_COMPANY-IN201001004527

PATIENT
  Age: 25 Year
  Sex: Male

DRUGS (7)
  1. XIGRIS [Suspect]
     Indication: MULTI-ORGAN FAILURE
     Dosage: UNK, UNKNOWN
     Route: 042
     Dates: start: 20100106
  2. AZTREONAM [Concomitant]
     Dosage: UNK, UNKNOWN
  3. PIPERACILLIN [Concomitant]
     Dosage: UNK, UNKNOWN
  4. TAZOBACTAM [Concomitant]
     Dosage: UNK, UNKNOWN
  5. TAMIFLU [Concomitant]
     Dosage: UNK, UNKNOWN
  6. VASOPRESSIN [Concomitant]
  7. NOR-ADRENALIN [Concomitant]
     Dosage: UNK, UNKNOWN

REACTIONS (1)
  - RESPIRATORY FAILURE [None]
